FAERS Safety Report 8679222 (Version 3)
Quarter: 2012Q4

REPORT INFORMATION
  Report Type: 
  Country: US (occurrence: US)
  Receive Date: 20120724
  Receipt Date: 20121010
  Transmission Date: 20130627
  Serious: Yes (Hospitalization, Other)
  Sender: FDA-Public Use
  Company Number: US-AMGEN-USASP2012044592

PATIENT
  Age: 67 Year
  Sex: Female
  Weight: 82.09 kg

DRUGS (1)
  1. ENBREL [Suspect]
     Indication: PSORIASIS
     Dosage: 50 mg, qwk
     Dates: start: 20041116

REACTIONS (2)
  - Thyroid cancer [Recovering/Resolving]
  - Mycobacterium tuberculosis complex test positive [Unknown]
